FAERS Safety Report 12724292 (Version 1)
Quarter: 2016Q3

REPORT INFORMATION
  Report Type: Spontaneous
  Country: US (occurrence: US)
  Receive Date: 20160906
  Receipt Date: 20160906
  Transmission Date: 20161109
  Serious: Yes (Death, Life-Threatening, Hospitalization)
  Sender: FDA-Public Use
  Company Number: None

PATIENT
  Age: 37 Year
  Sex: Male
  Weight: 49 kg

DRUGS (4)
  1. EFAVIRENZ/EMTRICITABINE/TENOFOVIR DF [Suspect]
     Active Substance: EFAVIRENZ\EMTRICITABINE\TENOFOVIR DISOPROXIL FUMARATE
     Indication: KAPOSI^S SARCOMA AIDS RELATED
     Route: 048
     Dates: start: 20140319, end: 20160802
  2. TRIMETHOPRIM/SULFAMETHOXAROLE [Concomitant]
  3. PACLITAXEL INJECTION [Suspect]
     Active Substance: PACLITAXEL
     Indication: CHEMOTHERAPY
     Dosage: EVERY 3 WEEKS
     Route: 042
     Dates: start: 20140319, end: 20140906
  4. PYRIDOXINE [Concomitant]
     Active Substance: PYRIDOXINE

REACTIONS (4)
  - Acute kidney injury [None]
  - Hyperkalaemia [None]
  - Diarrhoea [None]
  - Dyspnoea [None]

NARRATIVE: CASE EVENT DATE: 20160803
